FAERS Safety Report 10299040 (Version 2)
Quarter: 2015Q3

REPORT INFORMATION
  Report Type: Spontaneous
  Country: US (occurrence: US)
  Receive Date: 20140711
  Receipt Date: 20150817
  Transmission Date: 20151125
  Serious: No
  Sender: FDA-Public Use
  Company Number: US-GILEAD-2013-0084613

PATIENT
  Age: 44 Year
  Sex: Female

DRUGS (2)
  1. LETAIRIS [Suspect]
     Active Substance: AMBRISENTAN
     Dates: start: 20130910
  2. LETAIRIS [Suspect]
     Active Substance: AMBRISENTAN
     Indication: PRODUCT USED FOR UNKNOWN INDICATION
     Dosage: 5 MG, QD
     Dates: start: 20130911

REACTIONS (11)
  - Urinary tract infection [Unknown]
  - Migraine [Unknown]
  - Blood glucose decreased [Unknown]
  - Dizziness [Unknown]
  - Peripheral swelling [Unknown]
  - Abdominal distension [Unknown]
  - Ear infection [Unknown]
  - Constipation [Unknown]
  - Abdominal pain upper [Unknown]
  - Presyncope [Unknown]
  - Blood urine present [Unknown]
